FAERS Safety Report 10210007 (Version 3)
Quarter: 2014Q4

REPORT INFORMATION
  Report Type: Report from Study
  Country: CA (occurrence: CA)
  Receive Date: 20140602
  Receipt Date: 20141008
  Transmission Date: 20150528
  Serious: Yes (Hospitalization, Other)
  Sender: FDA-Public Use
  Company Number: CA-JNJFOC-20140210533

PATIENT
  Age: 59 Year
  Sex: Female
  Weight: 53 kg

DRUGS (2)
  1. REMICADE [Suspect]
     Active Substance: INFLIXIMAB
     Indication: CROHN^S DISEASE
     Route: 042
  2. METHOTREXATE [Concomitant]
     Active Substance: METHOTREXATE
     Indication: CROHN^S DISEASE
     Route: 065

REACTIONS (11)
  - Feeling abnormal [Unknown]
  - Muscle spasms [Unknown]
  - Blood pressure decreased [Unknown]
  - Impaired healing [Not Recovered/Not Resolved]
  - Surgery [Unknown]
  - Dehydration [Unknown]
  - Haematochezia [Unknown]
  - Intestinal operation [Unknown]
  - Stomatitis [Unknown]
  - Resection of rectum [Unknown]
  - Fistula [Recovering/Resolving]

NARRATIVE: CASE EVENT DATE: 2014
